FAERS Safety Report 6570928-5 (Version None)
Quarter: 2010Q1

REPORT INFORMATION
  Report Type: 
  Country: None (occurrence: None)
  Receive Date: 20100203
  Receipt Date: 20100203
  Transmission Date: 20100710
  Serious: Yes (Hospitalization)
  Sender: FDA-Public Use
  Company Number: None

PATIENT
  Sex: Female
  Weight: 98.7 kg

DRUGS (2)
  1. CISPLATIN [Suspect]
     Dosage: 152 MG
     Dates: end: 20100127
  2. VINORELBINE TARTRATE [Suspect]
     Dosage: 45 MG
     Dates: end: 20100127

REACTIONS (4)
  - ACTIVATED PARTIAL THROMBOPLASTIN TIME PROLONGED [None]
  - PAIN IN EXTREMITY [None]
  - SKIN DISCOLOURATION [None]
  - THROMBOSIS [None]
